FAERS Safety Report 24402760 (Version 2)
Quarter: 2024Q4

REPORT INFORMATION
  Report Type: Spontaneous
  Country: JP (occurrence: JP)
  Receive Date: 20241007
  Receipt Date: 20241106
  Transmission Date: 20250115
  Serious: Yes (Other)
  Sender: ALEXION PHARMACEUTICALS
  Company Number: JP-ASTRAZENECA-240007844_013120_P_1

PATIENT

DRUGS (16)
  1. IMFINZI [Suspect]
     Active Substance: DURVALUMAB
     Indication: Non-small cell lung cancer
     Dosage: DOSE UNKNOWN
  2. IMFINZI [Suspect]
     Active Substance: DURVALUMAB
     Dosage: DOSE UNKNOWN
  3. IMFINZI [Suspect]
     Active Substance: DURVALUMAB
     Dosage: DOSE UNKNOWN
  4. IMFINZI [Suspect]
     Active Substance: DURVALUMAB
     Dosage: DOSE UNKNOWN
  5. IMFINZI [Suspect]
     Active Substance: DURVALUMAB
     Dosage: DOSE UNKNOWN
  6. IMFINZI [Suspect]
     Active Substance: DURVALUMAB
     Dosage: DOSE UNKNOWN
  7. IMFINZI [Suspect]
     Active Substance: DURVALUMAB
     Dosage: DOSE UNKNOWN
  8. IMFINZI [Suspect]
     Active Substance: DURVALUMAB
     Dosage: DOSE UNKNOWN
  9. IMJUDO [Suspect]
     Active Substance: TREMELIMUMAB\TREMELIMUMAB-ACTL
     Indication: Non-small cell lung cancer
     Dosage: DOSE UNKNOWN
  10. IMJUDO [Suspect]
     Active Substance: TREMELIMUMAB\TREMELIMUMAB-ACTL
     Dosage: DOSE UNKNOWN
  11. IMJUDO [Suspect]
     Active Substance: TREMELIMUMAB\TREMELIMUMAB-ACTL
     Dosage: DOSE UNKNOWN
  12. IMJUDO [Suspect]
     Active Substance: TREMELIMUMAB\TREMELIMUMAB-ACTL
     Dosage: DOSE UNKNOWN
  13. IMJUDO [Suspect]
     Active Substance: TREMELIMUMAB\TREMELIMUMAB-ACTL
     Dosage: DOSE UNKNOWN
  14. IMJUDO [Suspect]
     Active Substance: TREMELIMUMAB\TREMELIMUMAB-ACTL
     Dosage: DOSE UNKNOWN
  15. IMJUDO [Suspect]
     Active Substance: TREMELIMUMAB\TREMELIMUMAB-ACTL
     Dosage: DOSE UNKNOWN
  16. IMJUDO [Suspect]
     Active Substance: TREMELIMUMAB\TREMELIMUMAB-ACTL
     Dosage: DOSE UNKNOWN

REACTIONS (3)
  - Gastric ulcer [Recovering/Resolving]
  - Pneumonitis [Unknown]
  - Anaemia [Recovering/Resolving]
